FAERS Safety Report 7528203-8 (Version None)
Quarter: 2011Q2

REPORT INFORMATION
  Report Type: 
  Country: None (occurrence: None)
  Receive Date: 20110607
  Receipt Date: 20100611
  Transmission Date: 20111010
  Serious: No
  Sender: FDA-Public Use
  Company Number: US-ASTRAZENECA-2010SE27633

PATIENT
  Sex: Male

DRUGS (1)
  1. PRILOSEC [Suspect]
     Route: 048
     Dates: start: 20090304

REACTIONS (3)
  - GLOSSODYNIA [None]
  - BLOOD CHOLESTEROL DECREASED [None]
  - ABDOMINAL PAIN UPPER [None]
